FAERS Safety Report 8791147 (Version 1)
Quarter: 2012Q4

REPORT INFORMATION
  Report Type: Spontaneous
  Country: ES (occurrence: None)
  Receive Date: 20120912
  Receipt Date: 20120912
  Transmission Date: 20130627
  Serious: Yes (Other)
  Sender: FDA-Public Use
  Company Number: DSM-2012-00961

PATIENT
  Age: 75 Year
  Sex: Male

DRUGS (6)
  1. SEVIKAR HCT [Suspect]
     Dosage: 40 mg/ 10mg/ 12.5 mg (1 in 1 d), oral
     Dates: start: 20120727, end: 20120810
  2. EUCREAS [Suspect]
     Dosage: 1000mg / 50mg (1 in 1 d), oral
     Dates: start: 20120727, end: 20120806
  3. LOVIBON (NEBIVOLOL HYDROCHLORIDE) (5 MILLIGRAM, TABLET) (NEBIVOLOL HYDROCHLORIDE) [Suspect]
     Dosage: 5 mg (5 mg, 1 in 1 d), oral
     Dates: start: 20120727, end: 20120810
  4. SINTROM (ACENOCOUMAROL) [Concomitant]
  5. CRESTOR (ROSUVASTATIN CALCIUM) [Concomitant]
  6. ALLOPURINOL (ALLOPURINOL) [Concomitant]

REACTIONS (6)
  - Dyspnoea [None]
  - Somnolence [None]
  - Asthenia [None]
  - Urinary incontinence [None]
  - Generalised oedema [None]
  - Drug interaction [None]
